FAERS Safety Report 9147757 (Version 5)
Quarter: 2013Q2

REPORT INFORMATION
  Report Type: Report from Study
  Country: CZ (occurrence: CZ)
  Receive Date: 20130307
  Receipt Date: 20130506
  Transmission Date: 20140414
  Serious: Yes (Hospitalization)
  Sender: FDA-Public Use
  Company Number: CZ-ABBOTT-13P-217-1055146-00

PATIENT
  Age: 37 Year
  Sex: Female
  Weight: 98 kg

DRUGS (2)
  1. HUMIRA [Suspect]
     Indication: SPONDYLITIS
     Route: 058
     Dates: start: 20100209, end: 20130122
  2. LETROX [Concomitant]
     Indication: THYROIDECTOMY
     Dates: start: 20120411

REACTIONS (2)
  - Cough [Recovered/Resolved]
  - Purpura [Recovered/Resolved]
